FAERS Safety Report 10955386 (Version 1)
Quarter: 2015Q1

REPORT INFORMATION
  Report Type: Spontaneous
  Country: US (occurrence: US)
  Receive Date: 20150326
  Receipt Date: 20150326
  Transmission Date: 20150721
  Serious: Yes (Death)
  Sender: FDA-Public Use
  Company Number: US-CIPLA LTD.-2015US02183

PATIENT

DRUGS (3)
  1. CAPECITABINE. [Suspect]
     Active Substance: CAPECITABINE
     Indication: ADENOCARCINOMA PANCREAS
     Dosage: 1500 MG/M2, DAYS 1-14, 3-WEEK CYCLE FOR 6 CYCLES
  2. DOCETAXEL. [Suspect]
     Active Substance: DOCETAXEL
     Indication: ADENOCARCINOMA PANCREAS
     Dosage: 30 MG/M2, DAYS 4 AND 11, 3-WEEK CYCLE FOR 6 CYCLES
  3. GEMCITABINE [Suspect]
     Active Substance: GEMCITABINE\GEMCITABINE HYDROCHLORIDE
     Indication: ADENOCARCINOMA PANCREAS
     Dosage: 750 MG/M2, DAYS 4 AND 11, 3 WEEK CYCLE FOR 6 CYCLES

REACTIONS (1)
  - Pulmonary embolism [Fatal]
